FAERS Safety Report 25746318 (Version 2)
Quarter: 2025Q4

REPORT INFORMATION
  Report Type: Spontaneous
  Country: US (occurrence: US)
  Receive Date: 20250901
  Receipt Date: 20251031
  Transmission Date: 20260117
  Serious: No
  Sender: VERO BIOTECH
  Company Number: US-VEROBIOTECH-2025USVEROSPO00265

PATIENT

DRUGS (1)
  1. GENOSYL [Suspect]
     Active Substance: NITRIC OXIDE
     Indication: Product used for unknown indication
     Dosage: 60 PPM

REACTIONS (1)
  - No device malfunction [Unknown]
